FAERS Safety Report 12252852 (Version 1)
Quarter: 2016Q2

REPORT INFORMATION
  Report Type: Spontaneous
  Country: DK (occurrence: DK)
  Receive Date: 20160411
  Receipt Date: 20160411
  Transmission Date: 20160815
  Serious: Yes (Disabling)
  Sender: FDA-Public Use
  Company Number: DK-009507513-1604DNK002194

PATIENT
  Age: 39 Year
  Sex: Female

DRUGS (2)
  1. HJERTEMAGNYL [Concomitant]
     Active Substance: ASPIRIN\MAGNESIUM OXIDE
     Indication: THROMBOSIS PROPHYLAXIS
     Route: 048
     Dates: start: 20140331
  2. PEGINTRON [Suspect]
     Active Substance: PEGINTERFERON ALFA-2B
     Indication: ESSENTIAL THROMBOCYTHAEMIA
     Dosage: 25 MICROGRAM, QW
     Route: 058
     Dates: start: 20140331, end: 20140421

REACTIONS (20)
  - Oral infection [Recovered/Resolved]
  - Muscular weakness [Recovered/Resolved]
  - Pain in extremity [Not Recovered/Not Resolved]
  - Arthralgia [Not Recovered/Not Resolved]
  - Abdominal pain [Recovered/Resolved]
  - Hypoaesthesia [Not Recovered/Not Resolved]
  - Paraesthesia [Not Recovered/Not Resolved]
  - Exercise tolerance decreased [Recovered/Resolved]
  - Lacrimation increased [Recovered/Resolved]
  - Feeling cold [Recovered/Resolved]
  - Pain of skin [Recovered/Resolved]
  - Myalgia [Recovered/Resolved]
  - Headache [Recovered/Resolved]
  - Sensory disturbance [Recovered/Resolved]
  - Exercise tolerance decreased [Not Recovered/Not Resolved]
  - Fatigue [Not Recovered/Not Resolved]
  - Peripheral swelling [Not Recovered/Not Resolved]
  - Nerve injury [Not Recovered/Not Resolved]
  - Impaired work ability [Not Recovered/Not Resolved]
  - Visual impairment [Recovered/Resolved]

NARRATIVE: CASE EVENT DATE: 2014
